FAERS Safety Report 7468689-0 (Version None)
Quarter: 2011Q2

REPORT INFORMATION
  Report Type: 
  Country: None (occurrence: None)
  Receive Date: 20110510
  Receipt Date: 20110429
  Transmission Date: 20111010
  Serious: Yes (Hospitalization)
  Sender: FDA-Public Use
  Company Number: US-BIOGENIDEC-2010BI026764

PATIENT
  Age: 47 Year
  Sex: Female

DRUGS (1)
  1. TYSABRI [Suspect]
     Indication: MULTIPLE SCLEROSIS
     Route: 042
     Dates: start: 20100215

REACTIONS (9)
  - BACK PAIN [None]
  - PNEUMONIA [None]
  - SINUSITIS [None]
  - DRUG EFFECT DECREASED [None]
  - VOMITING [None]
  - BRONCHITIS [None]
  - NASOPHARYNGITIS [None]
  - ABDOMINAL DISCOMFORT [None]
  - HYPERSENSITIVITY [None]
